FAERS Safety Report 25525174 (Version 1)
Quarter: 2025Q3

REPORT INFORMATION
  Report Type: Spontaneous
  Country: US (occurrence: US)
  Receive Date: 20250707
  Receipt Date: 20250707
  Transmission Date: 20251021
  Serious: No
  Sender: SANOFI AVENTIS
  Company Number: US-SA-2025SA190097

PATIENT
  Sex: Male
  Weight: 123.64 kg

DRUGS (1)
  1. DUPIXENT [Suspect]
     Active Substance: DUPILUMAB
     Indication: Nasal polyps
     Dosage: 300 MG, QOW
     Route: 058

REACTIONS (4)
  - Wheezing [Unknown]
  - Rash macular [Unknown]
  - Ocular hyperaemia [Unknown]
  - Myalgia [Unknown]

NARRATIVE: CASE EVENT DATE: 20250601
